FAERS Safety Report 13688914 (Version 1)
Quarter: 2017Q2

REPORT INFORMATION
  Report Type: Report from Study
  Country: US (occurrence: US)
  Receive Date: 20170626
  Receipt Date: 20170626
  Transmission Date: 20170830
  Serious: Yes (Other)
  Sender: FDA-Public Use
  Company Number: US-MYLANLABS-2017M1037748

PATIENT

DRUGS (2)
  1. INIPARIB [Suspect]
     Active Substance: INIPARIB
     Indication: MALIGNANT GLIOMA
     Dosage: 5.1MG/KG
     Route: 042
  2. TEMOZOLOMIDE. [Suspect]
     Active Substance: TEMOZOLOMIDE
     Indication: MALIGNANT GLIOMA
     Route: 065

REACTIONS (1)
  - Brain injury [Unknown]
